FAERS Safety Report 25282327 (Version 1)
Quarter: 2025Q2

REPORT INFORMATION
  Report Type: Other
  Country: GB (occurrence: GB)
  Receive Date: 20250508
  Receipt Date: 20250508
  Transmission Date: 20250717
  Serious: Yes (Life-Threatening)
  Sender: STRIDES
  Company Number: None

PATIENT

DRUGS (2)
  1. IBUPROFEN [Suspect]
     Active Substance: IBUPROFEN
     Indication: Oropharyngeal pain
     Route: 048
     Dates: start: 2025
  2. ACETAMINOPHEN [Suspect]
     Active Substance: ACETAMINOPHEN
     Indication: Oropharyngeal pain
     Route: 048
     Dates: start: 2025

REACTIONS (9)
  - Ageusia [Unknown]
  - Decreased appetite [Unknown]
  - Product after taste [Unknown]
  - Hiccups [Unknown]
  - Salivary hypersecretion [Unknown]
  - Suffocation feeling [Unknown]
  - Choking sensation [Unknown]
  - Communication disorder [Unknown]
  - Dyspnoea [Unknown]

NARRATIVE: CASE EVENT DATE: 20250101
